FAERS Safety Report 15163569 (Version 1)
Quarter: 2018Q3

REPORT INFORMATION
  Report Type: Spontaneous
  Country: CL (occurrence: CL)
  Receive Date: 20180719
  Receipt Date: 20180719
  Transmission Date: 20181010
  Serious: Yes (Other)
  Sender: FDA-Public Use
  Company Number: CL-ROCHE-2155118

PATIENT
  Age: 84 Year
  Sex: Female

DRUGS (1)
  1. XELODA [Suspect]
     Active Substance: CAPECITABINE
     Indication: COLON CANCER
     Route: 048
     Dates: start: 20120813, end: 20121220

REACTIONS (10)
  - Ill-defined disorder [Unknown]
  - Confusional state [Unknown]
  - Metastases to lung [Recovered/Resolved]
  - Ill-defined disorder [Not Recovered/Not Resolved]
  - Oropharyngeal pain [Unknown]
  - Lung operation [Unknown]
  - Nasopharyngitis [Unknown]
  - Cough [Unknown]
  - Platelet count decreased [Not Recovered/Not Resolved]
  - Drug ineffective [Unknown]

NARRATIVE: CASE EVENT DATE: 201212
